FAERS Safety Report 16515633 (Version 1)
Quarter: 2019Q3

REPORT INFORMATION
  Report Type: Spontaneous
  Country: US (occurrence: US)
  Receive Date: 20190702
  Receipt Date: 20190702
  Transmission Date: 20191004
  Serious: Yes (Other)
  Sender: FDA-Public Use
  Company Number: None

PATIENT
  Age: 66 Year
  Sex: Female
  Weight: 62.55 kg

DRUGS (1)
  1. SENSODYNE REPAIR AND PROTECT EXTRA FRESH [Suspect]
     Active Substance: STANNOUS FLUORIDE
     Indication: RADICULOPATHY
     Route: 061

REACTIONS (9)
  - Mouth ulceration [None]
  - Lip ulceration [None]
  - Tongue discomfort [None]
  - Lip dry [None]
  - Tongue ulceration [None]
  - Dysgeusia [None]
  - Tongue dry [None]
  - Hypoaesthesia oral [None]
  - Oral discomfort [None]

NARRATIVE: CASE EVENT DATE: 20190616
